FAERS Safety Report 8247356-X (Version None)
Quarter: 2012Q1

REPORT INFORMATION
  Report Type: 
  Country: None (occurrence: None)
  Receive Date: 20120328
  Receipt Date: 20120328
  Transmission Date: 20120608
  Serious: No
  Sender: FDA-Public Use
  Company Number: None

PATIENT
  Age: 39 Year
  Sex: Female

DRUGS (2)
  1. PROCARDIA [Suspect]
     Dates: start: 20100301, end: 20100515
  2. ALDOMET [Suspect]
     Dates: start: 20100301, end: 20100515

REACTIONS (2)
  - HEPATITIS [None]
  - CONTRACTED BLADDER [None]
